FAERS Safety Report 5214536-7 (Version None)
Quarter: 2007Q1

REPORT INFORMATION
  Report Type: 
  Country: None (occurrence: None)
  Receive Date: 20070116
  Receipt Date: 20070111
  Transmission Date: 20070707
  Serious: Yes (Death)
  Sender: FDA-Public Use
  Company Number: AUWYE122211JAN07

PATIENT
  Age: 44 Year
  Sex: Male

DRUGS (7)
  1. EFEXOR XR (VENLAFAXINE HYDROCHLORIDE, TABLET, 0 ) [Suspect]
  2. ALCOHOL (ETHANOL, , 0) [Suspect]
  3. CANNABIS (CANNABIS, , 0) [Suspect]
  4. VALPROATE SODIUM [Suspect]
  5. SEROQUEL [Suspect]
     Indication: AFFECTIVE DISORDER
  6. ASMOL (SALBUTAMOL SULFATE) [Concomitant]
  7. PANADEINE FORTE (CODEINE PHOSPHATE/PARACETAMOL) [Concomitant]

REACTIONS (1)
  - SUDDEN DEATH [None]
